FAERS Safety Report 6004672-X (Version None)
Quarter: 2008Q4

REPORT INFORMATION
  Report Type: 
  Country: None (occurrence: None)
  Receive Date: 20081216
  Receipt Date: 20081204
  Transmission Date: 20090506
  Serious: Yes (Hospitalization)
  Sender: FDA-Public Use
  Company Number: JP-SANOFI-SYNTHELABO-A01200815960

PATIENT
  Age: 74 Year
  Sex: Male

DRUGS (1)
  1. PENTAZOCINE LACTATE [Suspect]
     Indication: PAIN
     Route: 030
     Dates: start: 20081126, end: 20081126

REACTIONS (4)
  - ALANINE AMINOTRANSFERASE INCREASED [None]
  - ASPARTATE AMINOTRANSFERASE INCREASED [None]
  - HYPERBILIRUBINAEMIA [None]
  - PYREXIA [None]
